FAERS Safety Report 24745166 (Version 2)
Quarter: 2025Q1

REPORT INFORMATION
  Report Type: Report from Study
  Country: US (occurrence: US)
  Receive Date: 20241217
  Receipt Date: 20250108
  Transmission Date: 20250409
  Serious: Yes (Hospitalization, Other)
  Sender: GILEAD
  Company Number: US-GILEAD-2024-0697375

PATIENT
  Sex: Female

DRUGS (2)
  1. AMBRISENTAN [Suspect]
     Active Substance: AMBRISENTAN
     Indication: Pulmonary hypertension
     Dosage: 10 MG, QD
     Route: 065
     Dates: start: 20240812
  2. TADALAFIL [Concomitant]
     Active Substance: TADALAFIL

REACTIONS (3)
  - Hepatic cirrhosis [Unknown]
  - Cerebral disorder [Unknown]
  - Syncope [Unknown]
